FAERS Safety Report 11786817 (Version 1)
Quarter: 2015Q4

REPORT INFORMATION
  Report Type: Spontaneous
  Country: US (occurrence: US)
  Receive Date: 20151130
  Receipt Date: 20151130
  Transmission Date: 20160305
  Serious: Yes (Hospitalization, Other)
  Sender: FDA-Public Use
  Company Number: US-JNJFOC-20151121302

PATIENT
  Sex: Male
  Weight: 99.79 kg

DRUGS (2)
  1. RISPERIDONE. [Suspect]
     Active Substance: RISPERIDONE
     Indication: SCHIZOPHRENIA
     Dosage: DURATION- 10 YEARS
     Route: 065
  2. PAROXETINE [Suspect]
     Active Substance: PAROXETINE\PAROXETINE HYDROCHLORIDE
     Indication: PRODUCT USED FOR UNKNOWN INDICATION
     Route: 065

REACTIONS (7)
  - Atrophy [Unknown]
  - Neurotransmitter level altered [Unknown]
  - Drug ineffective [Unknown]
  - Chest pain [Unknown]
  - Akathisia [Unknown]
  - Pain [Unknown]
  - Gynaecomastia [Unknown]
